FAERS Safety Report 9980873 (Version 1)
Quarter: 2014Q1

REPORT INFORMATION
  Report Type: Spontaneous
  Country: US (occurrence: US)
  Receive Date: 20140307
  Receipt Date: 20140307
  Transmission Date: 20141002
  Serious: No
  Sender: FDA-Public Use
  Company Number: US-GLAXOSMITHKLINE-A1010295A

PATIENT
  Age: 40 Year
  Sex: Female

DRUGS (2)
  1. REQUIP [Suspect]
     Indication: SENSATION OF HEAVINESS
     Route: 065
  2. COPAXONE [Concomitant]
     Indication: MULTIPLE SCLEROSIS
     Dosage: 20MG UNKNOWN
     Route: 058
     Dates: start: 20110127

REACTIONS (2)
  - Malaise [Unknown]
  - Off label use [Unknown]
